FAERS Safety Report 8958940 (Version 2)
Quarter: 2012Q4

REPORT INFORMATION
  Report Type: 
  Country: BR (occurrence: BR)
  Receive Date: 20121212
  Receipt Date: 20121224
  Transmission Date: 20130627
  Serious: Yes (Hospitalization)
  Sender: FDA-Public Use
  Company Number: BR-JNJFOC-20121203455

PATIENT
  Age: 64 Year
  Sex: Female

DRUGS (3)
  1. XARELTO [Suspect]
     Indication: THROMBOSIS PROPHYLAXIS
     Dosage: cumulative dose :40 mg
     Route: 048
     Dates: start: 20121123, end: 20121127
  2. XARELTO [Suspect]
     Indication: DEEP VEIN THROMBOSIS
     Dosage: cumulative dose :40 mg
     Route: 048
     Dates: start: 20121123, end: 20121127
  3. VIT K ANTAGONISTS [Concomitant]
     Route: 065
     Dates: end: 20121122

REACTIONS (3)
  - Cardiac failure [Not Recovered/Not Resolved]
  - Pulmonary oedema [Unknown]
  - Medication error [Unknown]
